FAERS Safety Report 6613510-3 (Version None)
Quarter: 2010Q1

REPORT INFORMATION
  Report Type: 
  Country: None (occurrence: None)
  Receive Date: 20100304
  Receipt Date: 20100225
  Transmission Date: 20100710
  Serious: Yes (Hospitalization)
  Sender: FDA-Public Use
  Company Number: CH-SANOFI-AVENTIS-2010SA011092

PATIENT
  Age: 78 Year
  Sex: Male
  Weight: 60 kg

DRUGS (6)
  1. CLEXANE [Suspect]
     Dates: start: 20091223, end: 20100205
  2. ALDARA [Suspect]
     Dosage: 5 PER 7 DAYS
     Route: 061
     Dates: start: 20091201, end: 20100114
  3. ASPIRIN [Concomitant]
     Route: 048
  4. COSAAR PLUS [Concomitant]
     Route: 048
  5. CALCIMAGON-D3 [Concomitant]
     Route: 048
     Dates: start: 20091229
  6. FUCIDINE CAP [Concomitant]
     Route: 061
     Dates: start: 20091229

REACTIONS (3)
  - LEUKOPENIA [None]
  - PYREXIA [None]
  - THROMBOCYTOPENIA [None]
